FAERS Safety Report 7516664-X (Version None)
Quarter: 2011Q2

REPORT INFORMATION
  Report Type: 
  Country: None (occurrence: None)
  Receive Date: 20110601
  Receipt Date: 20110527
  Transmission Date: 20111010
  Serious: Yes (Life-Threatening, Hospitalization)
  Sender: FDA-Public Use
  Company Number: US-ROCHE-753007

PATIENT
  Sex: Female
  Weight: 52 kg

DRUGS (16)
  1. LORTAB [Concomitant]
     Dosage: FREQUENCY: PRN
     Dates: start: 20051111
  2. PREDNISONE [Concomitant]
     Route: 048
     Dates: start: 20051111
  3. CALCIUM CARBONATE [Concomitant]
     Dosage: TDD: I TAB
     Dates: start: 20000101
  4. TYLENOL (CAPLET) [Concomitant]
     Dosage: TDD: 1 TAB PRN
     Dates: start: 20000101
  5. TOCILIZUMAB [Suspect]
     Indication: RHEUMATOID ARTHRITIS
     Dosage: DOSAGE FORM: INFUSION. DATE OF LAST DOSE PROIR TO SAE: 27 DECEMBER 2010.
     Route: 042
     Dates: start: 20060303
  6. METHOTREXATE [Concomitant]
     Dosage: FREQUENCY: EVERY WEEK
     Route: 048
     Dates: start: 20071002
  7. SUDAFED 12 HOUR [Concomitant]
     Dosage: TDD: 1 TAB PRN
     Dates: start: 20071101
  8. PLACEBO [Suspect]
     Dosage: PATIENT WAS PREVIOUSLY ENROLLEDIN WA18062.
     Route: 065
  9. FOLIC ACID [Concomitant]
     Dates: start: 20000401
  10. LORAZEPAM [Concomitant]
     Dosage: FREQUENCY: AS NECESSARY
     Dates: start: 20100426
  11. PROTONIX [Concomitant]
     Dates: start: 20060303
  12. ACETAMINOPHEN [Concomitant]
     Dosage: FREQUENCY: PRN
     Dates: start: 20000401
  13. EXCEDRIN (MIGRAINE) [Concomitant]
     Dosage: FREQUENCY: 400 MG PRN
     Dates: start: 19950101
  14. AMITRIPTYLINE HCL [Concomitant]
     Dosage: FREQUENCY: QD (EVERY DAY)
     Dates: start: 20080328
  15. LEXAPRO [Concomitant]
     Route: 048
     Dates: start: 20080917
  16. ROLAIDS [Concomitant]
     Dosage: FREQUENCY: 1 TAB PRN
     Dates: start: 20070101

REACTIONS (2)
  - PNEUMONIA [None]
  - DEEP VEIN THROMBOSIS [None]
